FAERS Safety Report 4727852-X (Version None)
Quarter: 2005Q3

REPORT INFORMATION
  Report Type: 
  Country: None (occurrence: None)
  Receive Date: 20050728
  Receipt Date: 20050720
  Transmission Date: 20060218
  Serious: Yes (Hospitalization)
  Sender: FDA-Public Use
  Company Number: US-MERCK-0507USA03250

PATIENT
  Age: 73 Year
  Sex: Male

DRUGS (3)
  1. VIOXX [Suspect]
     Indication: PAIN
     Route: 048
     Dates: end: 20021024
  2. VIOXX [Suspect]
     Route: 048
     Dates: start: 20021024, end: 20040401
  3. VIOXX [Suspect]
     Route: 048
     Dates: end: 20041013

REACTIONS (12)
  - ASTHENIA [None]
  - BACK PAIN [None]
  - DEEP VEIN THROMBOSIS [None]
  - DEPRESSION [None]
  - HIATUS HERNIA [None]
  - MUSCLE STRAIN [None]
  - OESOPHAGITIS [None]
  - PAIN [None]
  - PAIN IN EXTREMITY [None]
  - PRURITUS [None]
  - TOOTH DISORDER [None]
  - VOMITING [None]
